FAERS Safety Report 9250641 (Version 1)
Quarter: 2013Q1

REPORT INFORMATION
  Report Type: Spontaneous
  Country: US (occurrence: None)
  Receive Date: 20130305
  Receipt Date: 20130305
  Transmission Date: 20140127
  Serious: Yes (Hospitalization)
  Sender: FDA-Public Use
  Company Number: 163-21880-12062479

PATIENT
  Age: 56 Year
  Sex: Male
  Weight: 68.8 kg

DRUGS (19)
  1. REVLIMID [Suspect]
     Indication: PLASMA CELL MYELOMA
     Route: 048
     Dates: start: 201112, end: 20120721
  2. VELCADE (BORTEZOMIDE) (UNKNOWN) [Concomitant]
  3. ACYCLOVIR (ACICLOVIR) (UNKNOWN) [Concomitant]
  4. AMLODIPINE (AMLODIPINE) (UNKNOWN) [Concomitant]
  5. LOMOTIL (LOMOTIL) (UNKNOWN) [Concomitant]
  6. ZYRTEC (CETIRIZINE HYDROCHLORIDE) (UNKNOWN) [Concomitant]
  7. DEXAMETHASONE (DEXAMETHASONE) (UNKNOWN) [Concomitant]
     Dosage: 2.8571 MG, 1 IN 1 WK, UNK
  8. HYDROXYCLOROQUINE (HYDROXYCHLOROQUINE) (UNKNOWN) [Concomitant]
  9. MAGNESIUM (MAGNESIUM) (UNKNOWN) [Concomitant]
  10. ZINC (ZINC) (UNKNOWN) [Concomitant]
  11. MULTIVITAMINS (MULTIVITAMINS) (UNKNOWN) [Concomitant]
  12. POTASSIUM SUPPLEMENTS (POTASSIUM) (UNKNOWN) [Concomitant]
  13. PHENERGAN (PROMETHAZINE) (UNKNOWN) [Concomitant]
  14. SERTRALINE (SERTRALINE) (UNKNOWN) [Concomitant]
  15. AMBIEN (ZOLPIDEM TARTRATE) (UNKNOWN) [Concomitant]
  16. CYCLOPHOSPHAMIDE (CYCLOPHOSPHAMIDE) (UNKNOWN) [Concomitant]
  17. SOLU-MEDEROL (METHYLPREDNISOLONE SODIUM SUCCINATE) (UNKNOWN) [Concomitant]
  18. MESNA (MESNA) (UNKNOWN) [Concomitant]
  19. BACTRIM (BACTRIM) (UNKNOWN) [Concomitant]

REACTIONS (5)
  - Diarrhoea [None]
  - Clostridium difficile colitis [None]
  - Anaemia [None]
  - Thrombocytopenia [None]
  - Neuropathy peripheral [None]
